FAERS Safety Report 26155480 (Version 1)
Quarter: 2025Q4

REPORT INFORMATION
  Report Type: Spontaneous
  Country: CN (occurrence: CN)
  Receive Date: 20251215
  Receipt Date: 20251215
  Transmission Date: 20260117
  Serious: Yes (Other)
  Sender: ALKEM
  Company Number: None

PATIENT
  Age: 67 Year
  Sex: Male

DRUGS (8)
  1. TACROLIMUS [Suspect]
     Active Substance: TACROLIMUS
     Indication: Dermatitis exfoliative generalised
     Dosage: UNK (OINTMENT)
     Route: 065
  2. TACROLIMUS [Suspect]
     Active Substance: TACROLIMUS
     Indication: Eczema
  3. TOFACITINIB [Suspect]
     Active Substance: TOFACITINIB
     Indication: Dermatitis exfoliative generalised
     Dosage: 5 MILLIGRAM, BID
     Route: 048
  4. TOFACITINIB [Suspect]
     Active Substance: TOFACITINIB
     Indication: Benign familial pemphigus
  5. ACITRETIN [Suspect]
     Active Substance: ACITRETIN
     Indication: Dermatitis exfoliative generalised
     Dosage: UNK
     Route: 065
  6. ACITRETIN [Suspect]
     Active Substance: ACITRETIN
     Indication: Eczema
  7. PREDNISONE [Suspect]
     Active Substance: PREDNISONE
     Indication: Dermatitis exfoliative generalised
     Dosage: UNK
     Route: 048
  8. PREDNISONE [Suspect]
     Active Substance: PREDNISONE
     Indication: Benign familial pemphigus

REACTIONS (3)
  - Hyperglycaemia [Unknown]
  - Osteoporosis [Unknown]
  - Off label use [Unknown]
